FAERS Safety Report 6845125-6 (Version None)
Quarter: 2010Q3

REPORT INFORMATION
  Report Type: 
  Country: None (occurrence: None)
  Receive Date: 20100715
  Receipt Date: 20070815
  Transmission Date: 20110219
  Serious: No
  Sender: FDA-Public Use
  Company Number: US-PFIZER INC-2007068419

PATIENT
  Sex: Female
  Weight: 67.272 kg

DRUGS (5)
  1. CHANTIX [Suspect]
     Indication: SMOKING CESSATION THERAPY
     Dates: start: 20070730
  2. SYNTHROID [Concomitant]
  3. COREG [Concomitant]
  4. DIOVAN [Concomitant]
  5. ZETIA [Concomitant]

REACTIONS (2)
  - ABNORMAL DREAMS [None]
  - SLEEP DISORDER [None]
